FAERS Safety Report 16073868 (Version 1)
Quarter: 2019Q1

REPORT INFORMATION
  Report Type: Report from Study
  Country: US (occurrence: US)
  Receive Date: 20190314
  Receipt Date: 20190314
  Transmission Date: 20190418
  Serious: Yes (Death, Other)
  Sender: FDA-Public Use
  Company Number: US-BRISTOL-MYERS SQUIBB COMPANY-BMS-2019-022573

PATIENT
  Age: 62 Year
  Sex: Male
  Weight: 72 kg

DRUGS (1)
  1. BELATACEPT [Suspect]
     Active Substance: BELATACEPT
     Indication: RENAL TRANSPLANT
     Dosage: UNK UNK, QMO
     Route: 065
     Dates: start: 20140916

REACTIONS (1)
  - Squamous cell carcinoma [Fatal]

NARRATIVE: CASE EVENT DATE: 20181225
